FAERS Safety Report 21259051 (Version 2)
Quarter: 2022Q3

REPORT INFORMATION
  Report Type: Spontaneous
  Country: FR (occurrence: None)
  Receive Date: 20220826
  Receipt Date: 20220831
  Transmission Date: 20221026
  Serious: Yes (Hospitalization, Other)
  Sender: FDA-Public Use
  Company Number: 2022A291138

PATIENT
  Age: 64 Year
  Sex: Female
  Weight: 70.5 kg

DRUGS (5)
  1. LOSEC [Suspect]
     Active Substance: OMEPRAZOLE
     Indication: Prophylaxis against gastrointestinal ulcer
     Route: 048
     Dates: start: 20220404, end: 20220414
  2. LOSEC [Suspect]
     Active Substance: OMEPRAZOLE
     Indication: Back pain
     Route: 048
     Dates: start: 20220404, end: 20220414
  3. NAPROXEN [Suspect]
     Active Substance: NAPROXEN
     Indication: Back pain
     Route: 048
     Dates: start: 20220404, end: 20220404
  4. PROPRANOLOL [Concomitant]
     Active Substance: PROPRANOLOL HYDROCHLORIDE
     Route: 065
  5. TAMOXIFEN CITRATE [Concomitant]
     Active Substance: TAMOXIFEN CITRATE
     Route: 065

REACTIONS (5)
  - Hypotension [Recovered/Resolved]
  - Anaphylactic shock [Recovered/Resolved]
  - Angioedema [Recovered/Resolved]
  - Vomiting [Recovered/Resolved]
  - Product use in unapproved indication [Unknown]

NARRATIVE: CASE EVENT DATE: 20220404
